FAERS Safety Report 18985384 (Version 3)
Quarter: 2021Q3

REPORT INFORMATION
  Report Type: Report from Study
  Country: US (occurrence: US)
  Receive Date: 20210309
  Receipt Date: 20210902
  Transmission Date: 20211014
  Serious: Yes (Other)
  Sender: FDA-Public Use
  Company Number: US-UCBSA-2021009744

PATIENT
  Age: 41 Year
  Sex: Female

DRUGS (3)
  1. LACOSAMIDE. [Suspect]
     Active Substance: LACOSAMIDE
     Dosage: 100MG 3 TABLETS IN THE MORNING AND THEN 5 TABLETS AT NIGHT
     Route: 048
  2. LACOSAMIDE. [Suspect]
     Active Substance: LACOSAMIDE
     Indication: SEIZURE
     Dosage: 100 MG 4 TABLETS, 2X/DAY (BID)
     Route: 048
  3. LACOSAMIDE. [Suspect]
     Active Substance: LACOSAMIDE
     Dosage: 100MG 3TABS QAM AND 3.5 TABS QPM
     Route: 048

REACTIONS (7)
  - Arthropathy [Not Recovered/Not Resolved]
  - Tooth fracture [Not Recovered/Not Resolved]
  - Intentional product use issue [Unknown]
  - Cerebral disorder [Not Recovered/Not Resolved]
  - Dizziness [Not Recovered/Not Resolved]
  - Therapy interrupted [Unknown]
  - Prescribed overdose [Unknown]

NARRATIVE: CASE EVENT DATE: 20210222
